FAERS Safety Report 5355169-1 (Version None)
Quarter: 2007Q2

REPORT INFORMATION
  Report Type: 
  Country: None (occurrence: None)
  Receive Date: 20070525
  Receipt Date: 20070130
  Transmission Date: 20071010
  Serious: Yes (Hospitalization, Other)
  Sender: FDA-Public Use
  Company Number: WAES 0701USA05060

PATIENT
  Age: 73 Year
  Sex: Female
  Weight: 71.2147 kg

DRUGS (7)
  1. VYTORIN [Suspect]
     Indication: HYPERCHOLESTEROLAEMIA
     Dosage: 10-10 MG/DAILY/PO
     Route: 048
     Dates: start: 20050705, end: 20061101
  2. [THERAPY UNSPECIFIED] UNK [Suspect]
     Indication: ROUTINE HEALTH MAINTENANCE
     Dosage: UNK/UNK/UNK
  3. BENICAR [Concomitant]
  4. LEVOXYL [Concomitant]
  5. ASPIRIN [Concomitant]
  6. HYDROCHLOROTHIAZIDE [Concomitant]
  7. LABETALOL HYDROCHLORIDE [Concomitant]

REACTIONS (4)
  - IRON DEFICIENCY ANAEMIA [None]
  - OCCULT BLOOD POSITIVE [None]
  - PANCREATITIS ACUTE [None]
  - PANCREATITIS RELAPSING [None]
